FAERS Safety Report 5045443-0 (Version None)
Quarter: 2006Q3

REPORT INFORMATION
  Report Type: 
  Country: None (occurrence: None)
  Receive Date: 20060707
  Receipt Date: 20060627
  Transmission Date: 20061208
  Serious: Yes (Death)
  Sender: FDA-Public Use
  Company Number: EC-JNJFOC-20060606177

PATIENT
  Age: 28 Year
  Sex: Male
  Weight: 80 kg

DRUGS (3)
  1. RISPERDAL CONSTA [Suspect]
     Indication: SCHIZOPHRENIA
     Route: 030
  2. RISPERIDONE [Concomitant]
  3. VALPROIC ACID [Concomitant]

REACTIONS (6)
  - ANXIETY [None]
  - DEATH [None]
  - HEAD INJURY [None]
  - HYPOTENSION [None]
  - PARANOIA [None]
  - TACHYCARDIA [None]
